FAERS Safety Report 7940913-7 (Version None)
Quarter: 2011Q4

REPORT INFORMATION
  Report Type: 
  Country: None (occurrence: None)
  Receive Date: 20111128
  Receipt Date: 20111118
  Transmission Date: 20120403
  Serious: Yes (Hospitalization)
  Sender: FDA-Public Use
  Company Number: RO-JNJFOC-20111106025

PATIENT
  Sex: Male

DRUGS (1)
  1. REMICADE [Suspect]
     Indication: PSORIASIS
     Dosage: AT 0/2/4 WEEKS
     Route: 042
     Dates: start: 20110616, end: 20110728

REACTIONS (1)
  - LYMPH NODE TUBERCULOSIS [None]
